FAERS Safety Report 21801305 (Version 1)
Quarter: 2022Q4

REPORT INFORMATION
  Report Type: Spontaneous
  Country: US (occurrence: US)
  Receive Date: 20221230
  Receipt Date: 20221230
  Transmission Date: 20230112
  Serious: No
  Sender: FDA-Public Use
  Company Number: US-ACORDA-ACO_171889_2022

PATIENT
  Sex: Male

DRUGS (7)
  1. INBRIJA [Suspect]
     Active Substance: LEVODOPA
     Indication: Parkinson^s disease
     Dosage: 2 DOSAGE FORM, PRN (NOT TO EXCEED 3 DOSES PER DAY)
     Dates: start: 20220301
  2. INBRIJA [Suspect]
     Active Substance: LEVODOPA
     Indication: On and off phenomenon
     Dosage: 2 DOSAGE FORM (84 MG), PRN (NOT TO EXCEED 5 DOSES A DAY)
     Dates: start: 20220301
  3. INBRIJA [Suspect]
     Active Substance: LEVODOPA
     Indication: Tremor
     Dosage: 2 DOSAGE FORM (84 MG), PRN (NOT TO EXCEED 5 DOSES A DAY)
     Dates: start: 20220301
  4. INBRIJA [Suspect]
     Active Substance: LEVODOPA
     Dosage: 2 DOSAGE FORM, QD (TWO 42 MG CAPSULES AROUND 5PM)
  5. CARBIDOPA\LEVODOPA [Concomitant]
     Active Substance: CARBIDOPA\LEVODOPA
     Indication: Product used for unknown indication
     Dosage: 25/100 MG, 5X DAY
     Route: 065
  6. CARBIDOPA\LEVODOPA [Concomitant]
     Active Substance: CARBIDOPA\LEVODOPA
     Dosage: 50/200 MG 3X DAY
     Route: 065
  7. NEUPRO [Concomitant]
     Active Substance: ROTIGOTINE
     Indication: Product used for unknown indication
     Dosage: DIS 1MG/24HR
     Route: 065

REACTIONS (11)
  - Hair colour changes [Not Recovered/Not Resolved]
  - Saliva discolouration [Not Recovered/Not Resolved]
  - Incorrect dose administered by device [Unknown]
  - Product residue present [Unknown]
  - Balance disorder [Not Recovered/Not Resolved]
  - Back disorder [Not Recovered/Not Resolved]
  - Ageusia [Not Recovered/Not Resolved]
  - Gait disturbance [Not Recovered/Not Resolved]
  - Nasal discharge discolouration [Not Recovered/Not Resolved]
  - Cough [Not Recovered/Not Resolved]
  - Nasal discharge discolouration [Not Recovered/Not Resolved]

NARRATIVE: CASE EVENT DATE: 20200101
